FAERS Safety Report 9633039 (Version 3)
Quarter: 2013Q4

REPORT INFORMATION
  Report Type: Spontaneous
  Country: JP (occurrence: JP)
  Receive Date: 20131018
  Receipt Date: 20131025
  Transmission Date: 20140711
  Serious: Yes (Life-Threatening, Hospitalization, Other)
  Sender: FDA-Public Use
  Company Number: JP-ABBVIE-12P-087-1012288-00

PATIENT
  Age: 72 Year
  Sex: Female
  Weight: 45 kg

DRUGS (11)
  1. HUMIRA [Suspect]
     Indication: RHEUMATOID ARTHRITIS
     Route: 058
     Dates: start: 20110608, end: 20120711
  2. RHEUMATREX [Suspect]
     Indication: RHEUMATOID ARTHRITIS
     Route: 048
     Dates: start: 20100909, end: 20120723
  3. RHEUMATREX [Suspect]
     Route: 048
  4. FOLIC ACID [Concomitant]
     Indication: RHEUMATOID ARTHRITIS
     Route: 048
     Dates: start: 20100909, end: 20120723
  5. LOXOPROFEN SODIUM HYDRATE [Concomitant]
     Indication: HEADACHE
     Route: 048
     Dates: start: 20100909, end: 20120723
  6. L-CARBOCISTEINE [Concomitant]
     Indication: BRONCHITIS CHRONIC
     Route: 048
     Dates: start: 20120614, end: 20120723
  7. MAGNESIUM OXIDE [Concomitant]
     Indication: CONSTIPATION
     Route: 048
     Dates: start: 20100603, end: 20120723
  8. CANDESARTAN CILEXETIL [Concomitant]
     Indication: HYPERTENSION
     Route: 048
     Dates: start: 20100603, end: 20120723
  9. AMLODIPINE BESILATE [Concomitant]
     Indication: HYPERTENSION
     Route: 048
     Dates: start: 20100603, end: 20120723
  10. PRAVASTATIN SODIUM [Concomitant]
     Indication: HYPERLIPIDAEMIA
     Route: 048
     Dates: start: 20110909, end: 20120723
  11. LANSOPRAZOLE [Concomitant]
     Indication: GASTROOESOPHAGEAL REFLUX DISEASE
     Route: 048
     Dates: start: 20100603, end: 20120723

REACTIONS (6)
  - Chest X-ray abnormal [Recovering/Resolving]
  - Pneumocystis jirovecii pneumonia [Recovered/Resolved]
  - Acute respiratory failure [Unknown]
  - Interstitial lung disease [Unknown]
  - Pleural effusion [Unknown]
  - Vision blurred [Unknown]
